FAERS Safety Report 25720943 (Version 1)
Quarter: 2025Q3

REPORT INFORMATION
  Report Type: Spontaneous
  Country: US (occurrence: US)
  Receive Date: 20250825
  Receipt Date: 20250825
  Transmission Date: 20251021
  Serious: No
  Sender: ROCHE
  Company Number: US-ROCHE-10000368982

PATIENT
  Age: 18 Year
  Sex: Female

DRUGS (2)
  1. XOLAIR [Suspect]
     Active Substance: OMALIZUMAB
     Indication: Chronic spontaneous urticaria
     Dosage: STRENGTH:300 MH/2ML
     Route: 058
     Dates: start: 2024
  2. XOLAIR [Suspect]
     Active Substance: OMALIZUMAB
     Indication: Urticaria
     Dosage: STRENGTH:300 MH/2ML
     Route: 058
     Dates: start: 20250816, end: 20250816

REACTIONS (2)
  - No adverse event [Unknown]
  - Device defective [Unknown]

NARRATIVE: CASE EVENT DATE: 20250816
